FAERS Safety Report 7304511-0 (Version None)
Quarter: 2011Q1

REPORT INFORMATION
  Report Type: 
  Country: None (occurrence: None)
  Receive Date: 20110221
  Receipt Date: 20110201
  Transmission Date: 20110831
  Serious: Yes (Hospitalization)
  Sender: FDA-Public Use
  Company Number: DE-AMGEN-DEUCT2010004601

PATIENT
  Age: 39 Year
  Sex: Female

DRUGS (2)
  1. ETANERCEPT [Suspect]
     Indication: RHEUMATOID ARTHRITIS
     Dosage: 25 MG, UNK
     Dates: start: 20011001
  2. ETANERCEPT [Suspect]
     Dosage: 50 MG, UNK
     Dates: start: 20061106

REACTIONS (2)
  - SHOULDER ARTHROPLASTY [None]
  - ARTHRODESIS [None]
